FAERS Safety Report 6525309-7 (Version None)
Quarter: 2010Q1

REPORT INFORMATION
  Report Type: 
  Country: None (occurrence: None)
  Receive Date: 20100104
  Receipt Date: 20091222
  Transmission Date: 20100710
  Serious: No
  Sender: FDA-Public Use
  Company Number: FI-ELI_LILLY_AND_COMPANY-FI200912004896

PATIENT
  Age: 8 Year
  Sex: Male

DRUGS (2)
  1. STRATTERA [Suspect]
     Dosage: 18 MG, DAILY (1/D)
     Route: 065
     Dates: start: 20090901
  2. STRATTERA [Suspect]
     Dosage: 10 MG, DAILY (1/D)
     Route: 065
     Dates: start: 20090901

REACTIONS (7)
  - AGGRESSION [None]
  - COLD SWEAT [None]
  - CRYING [None]
  - HEADACHE [None]
  - PAIN [None]
  - SCREAMING [None]
  - SYNCOPE [None]
